FAERS Safety Report 8537103 (Version 4)
Quarter: 2014Q1

REPORT INFORMATION
  Report Type: Spontaneous
  Country: JP (occurrence: JP)
  Receive Date: 20120430
  Receipt Date: 20140131
  Transmission Date: 20141002
  Serious: Yes (Hospitalization, Other)
  Sender: FDA-Public Use
  Company Number: PHHY2012JP035136

PATIENT
  Age: 77 Year
  Sex: Male

DRUGS (3)
  1. SENNARIDE [Suspect]
  2. SELIS [Suspect]
  3. CIPROFLOXACIN [Suspect]

REACTIONS (4)
  - Chronic pigmented purpura [Recovering/Resolving]
  - Pigmentation disorder [Recovering/Resolving]
  - Petechiae [Recovering/Resolving]
  - Rash [Recovering/Resolving]
